FAERS Safety Report 25811673 (Version 2)
Quarter: 2025Q4

REPORT INFORMATION
  Report Type: Spontaneous
  Country: JP (occurrence: JP)
  Receive Date: 20250917
  Receipt Date: 20251013
  Transmission Date: 20260118
  Serious: Yes (Other)
  Sender: ASTELLAS
  Company Number: JP-ASTELLAS-2025-AER-050368

PATIENT
  Age: 8 Decade
  Sex: Female

DRUGS (1)
  1. VYLOY [Suspect]
     Active Substance: ZOLBETUXIMAB-CLZB
     Indication: Gastric cancer stage IV
     Route: 042
     Dates: start: 20250701, end: 20250701

REACTIONS (1)
  - Gastrointestinal stenosis [Recovering/Resolving]

NARRATIVE: CASE EVENT DATE: 20250701
